FAERS Safety Report 9778780 (Version 4)
Quarter: 2014Q1

REPORT INFORMATION
  Report Type: Report from Study
  Country: CA (occurrence: CA)
  Receive Date: 20131223
  Receipt Date: 20140321
  Transmission Date: 20141002
  Serious: Yes (Hospitalization, Other)
  Sender: FDA-Public Use
  Company Number: CA-UCBSA-106694

PATIENT
  Age: 65 Year
  Sex: Female
  Weight: 60.7 kg

DRUGS (6)
  1. CIMZIA [Suspect]
     Indication: RHEUMATOID ARTHRITIS
     Dosage: WEEKS 0-2-4
     Route: 058
     Dates: start: 20110929, end: 20111026
  2. CIMZIA [Suspect]
     Indication: RHEUMATOID ARTHRITIS
     Route: 058
     Dates: start: 20111123
  3. MTX [Concomitant]
     Indication: RHEUMATOID ARTHRITIS
     Dosage: 25MG WEEKLY
     Route: 030
     Dates: start: 200409
  4. FOLIC ACID [Concomitant]
     Indication: GENERAL PHYSICAL HEALTH DETERIORATION
     Dosage: 1MG 6/7/D/W
     Route: 048
  5. VENTOLIN INH [Concomitant]
     Indication: ASTHMA
     Dosage: PUFFS AS NEEDED
  6. SYMBICORT [Concomitant]
     Indication: ASTHMA
     Dosage: PUFFS

REACTIONS (5)
  - Pneumothorax [Recovered/Resolved]
  - Pneumonia [Unknown]
  - Drug hypersensitivity [Recovered/Resolved]
  - Wound infection [Recovering/Resolving]
  - Drug ineffective [Not Recovered/Not Resolved]
